FAERS Safety Report 13476290 (Version 2)
Quarter: 2020Q4

REPORT INFORMATION
  Report Type: Spontaneous
  Country: ES (occurrence: ES)
  Receive Date: 20170425
  Receipt Date: 20201008
  Transmission Date: 20210113
  Serious: Yes (Hospitalization, Other)
  Sender: FDA-Public Use
  Company Number: ES-VALIDUS PHARMACEUTICALS LLC-ES-2017VAL000637

PATIENT

DRUGS (2)
  1. CLOXACILLIN [Suspect]
     Active Substance: CLOXACILLIN
     Indication: OSTEOMYELITIS
     Dosage: 150 MG/KG, QD
     Route: 042
  2. CEFOTAXIME SODIUM [Suspect]
     Active Substance: CEFOTAXIME SODIUM
     Indication: OSTEOMYELITIS
     Dosage: 200 MG/KG, QD
     Route: 042

REACTIONS (20)
  - Gastroenteritis [Recovered/Resolved]
  - Pyrexia [Recovered/Resolved]
  - Pruritus [Recovered/Resolved]
  - Skin lesion [Recovered/Resolved]
  - Drug reaction with eosinophilia and systemic symptoms [Recovered/Resolved]
  - Red blood cell sedimentation rate increased [Recovered/Resolved]
  - Abdominal pain [Recovered/Resolved]
  - Hepatomegaly [Recovered/Resolved]
  - Alanine aminotransferase increased [Recovered/Resolved]
  - C-reactive protein increased [Recovered/Resolved]
  - Aspartate aminotransferase increased [Recovered/Resolved]
  - Serum ferritin increased [Recovered/Resolved]
  - Leukopenia [Recovered/Resolved]
  - Gamma-glutamyltransferase increased [Recovered/Resolved]
  - Malaise [Recovered/Resolved]
  - Rash maculo-papular [Recovered/Resolved]
  - Pain [Recovered/Resolved]
  - Thrombocytopenia [Recovered/Resolved]
  - Lymphadenopathy [Recovered/Resolved]
  - Blood lactate dehydrogenase increased [Recovered/Resolved]
